FAERS Safety Report 6065546-1 (Version None)
Quarter: 2009Q1

REPORT INFORMATION
  Report Type: 
  Country: None (occurrence: None)
  Receive Date: 20090130
  Receipt Date: 20090119
  Transmission Date: 20090719
  Serious: Yes (Hospitalization)
  Sender: FDA-Public Use
  Company Number: 1000003665

PATIENT
  Sex: Female

DRUGS (2)
  1. ESCITALOPRAM [Suspect]
     Dosage: 90 MG (90 MG, ONCE), ORAL
     Route: 048
  2. ALCOHOL [Suspect]
     Dosage: ORAL
     Route: 048

REACTIONS (3)
  - HALLUCINATION [None]
  - OVERDOSE [None]
  - UNRESPONSIVE TO STIMULI [None]
